FAERS Safety Report 18283283 (Version 1)
Quarter: 2020Q3

REPORT INFORMATION
  Report Type: Spontaneous
  Country: CA (occurrence: CA)
  Receive Date: 20200918
  Receipt Date: 20200918
  Transmission Date: 20201103
  Serious: Yes (Hospitalization)
  Sender: FDA-Public Use
  Company Number: CA-ASTRAZENECA-2020SF16446

PATIENT
  Age: 56 Year
  Sex: Female

DRUGS (5)
  1. PANCREATIN [Concomitant]
     Active Substance: PANCRELIPASE
     Indication: DYSPEPSIA
  2. GEMCITABINE HYDROCHLORIDE. [Suspect]
     Active Substance: GEMCITABINE HYDROCHLORIDE
     Indication: PANCREATIC CARCINOMA
     Dosage: 1320.0MG UNKNOWN
     Route: 041
  3. TICILIMUMAB [Suspect]
     Active Substance: TREMELIMUMAB
     Indication: PANCREATIC CARCINOMA
     Dosage: 75.0MG UNKNOWN
     Route: 041
  4. ABRAXANE [Suspect]
     Active Substance: PACLITAXEL
     Indication: PANCREATIC CARCINOMA
     Dosage: 165.0MG UNKNOWN
     Route: 041
  5. DURVALUMAB. [Suspect]
     Active Substance: DURVALUMAB
     Indication: PANCREATIC CARCINOMA
     Dosage: 1500.0MG UNKNOWN
     Route: 041

REACTIONS (1)
  - Infusion site infection [Recovered/Resolved]
